FAERS Safety Report 7705754-4 (Version None)
Quarter: 2011Q3

REPORT INFORMATION
  Report Type: 
  Country: None (occurrence: None)
  Receive Date: 20110824
  Receipt Date: 20110818
  Transmission Date: 20111222
  Serious: Yes (Other)
  Sender: FDA-Public Use
  Company Number: US-B.I. PHARMACEUTICALS,INC./RIDGEFIELD-2011-BP-20368BP

PATIENT
  Sex: Female

DRUGS (6)
  1. ACTOS [Concomitant]
     Indication: DIABETES MELLITUS
  2. PRILOSEC [Concomitant]
     Indication: GASTROOESOPHAGEAL REFLUX DISEASE
  3. SYNTHROID [Concomitant]
     Indication: HYPOTHYROIDISM
  4. SPIRIVA [Suspect]
     Indication: CHRONIC OBSTRUCTIVE PULMONARY DISEASE
     Dosage: 18 MCG
     Route: 055
     Dates: start: 20110501
  5. LOPRESSOR [Concomitant]
     Indication: HYPERTENSION
  6. PLAVIX [Concomitant]
     Indication: PROPHYLAXIS

REACTIONS (3)
  - BREATHING-RELATED SLEEP DISORDER [None]
  - HYDROTHORAX [None]
  - DYSPNOEA [None]
